FAERS Safety Report 9133491 (Version 1)
Quarter: 2013Q1

REPORT INFORMATION
  Report Type: Spontaneous
  Country: US (occurrence: US)
  Receive Date: 20130128
  Receipt Date: 20130128
  Transmission Date: 20140127
  Serious: No
  Sender: FDA-Public Use
  Company Number: US-009507513-1301USA011094

PATIENT
  Age: 7 Year
  Sex: 0

DRUGS (1)
  1. REMERON [Suspect]
     Dosage: 15 MG, UNK
     Dates: start: 2011

REACTIONS (2)
  - Drug administered to patient of inappropriate age [Unknown]
  - No adverse event [Unknown]
